FAERS Safety Report 7530247-7 (Version None)
Quarter: 2011Q2

REPORT INFORMATION
  Report Type: 
  Country: None (occurrence: None)
  Receive Date: 20110607
  Receipt Date: 20110531
  Transmission Date: 20111010
  Serious: Yes (Other)
  Sender: FDA-Public Use
  Company Number: US-US-EMD SERONO, INC.-237891K09USA

PATIENT
  Sex: Female
  Weight: 55 kg

DRUGS (7)
  1. NAPROXEN [Concomitant]
     Indication: ARTHRALGIA
  2. VICODIN [Concomitant]
     Indication: MUSCLE SPASTICITY
  3. CARBAMAZEPINE [Concomitant]
     Indication: MUSCLE SPASMS
  4. REBIF [Suspect]
     Indication: MULTIPLE SCLEROSIS
     Route: 058
     Dates: start: 20080101
  5. VICODIN [Concomitant]
     Indication: PAIN
  6. ZANTAC [Concomitant]
     Indication: GASTROOESOPHAGEAL REFLUX DISEASE
  7. STOOL SOFTENER [Concomitant]
     Indication: CONSTIPATION

REACTIONS (1)
  - UMBILICAL HERNIA [None]
